FAERS Safety Report 10922849 (Version 2)
Quarter: 2015Q3

REPORT INFORMATION
  Report Type: Spontaneous
  Country: US (occurrence: US)
  Receive Date: 20150317
  Receipt Date: 20150928
  Transmission Date: 20151125
  Serious: Yes (Death, Other)
  Sender: FDA-Public Use
  Company Number: US-GLAXOSMITHKLINE-US2015GSK035140

PATIENT
  Age: 65 Year
  Sex: Male

DRUGS (1)
  1. ADVAIR HFA [Suspect]
     Active Substance: FLUTICASONE PROPIONATE\SALMETEROL XINAFOATE
     Indication: ASTHMA

REACTIONS (5)
  - Myocardial infarction [Fatal]
  - Thrombosis [Unknown]
  - Sudden cardiac death [Fatal]
  - Cardiac failure [Fatal]
  - Emphysema [Unknown]

NARRATIVE: CASE EVENT DATE: 20150219
